FAERS Safety Report 9825473 (Version 2)
Quarter: 2014Q1

REPORT INFORMATION
  Report Type: Spontaneous
  Country: US (occurrence: US)
  Receive Date: 20140117
  Receipt Date: 20140213
  Transmission Date: 20141002
  Serious: No
  Sender: FDA-Public Use
  Company Number: US-PFIZER INC-2014014615

PATIENT
  Age: 53 Year
  Sex: Female
  Weight: 77.1 kg

DRUGS (10)
  1. LYRICA [Suspect]
     Indication: FIBROMYALGIA
     Dosage: 150 MG AT NOON AND 300MG AT NIGHT, (2X/DAY)
     Dates: start: 201210, end: 201401
  2. BENICAR [Concomitant]
     Indication: HYPERTENSION
     Dosage: 20 MG, DAILY
  3. PRILOSEC [Concomitant]
     Indication: GASTRIC ULCER
     Dosage: 40 MG, UNK
  4. LIVALO [Concomitant]
     Indication: BLOOD CHOLESTEROL INCREASED
     Dosage: 4 MG, DAILY
  5. TOPROL [Concomitant]
     Indication: CARDIAC DISORDER
     Dosage: 50 MG, UNK
  6. AMBIEN [Concomitant]
     Indication: SLEEP DISORDER
     Dosage: 10 MG, AS NEEDED
  7. PAXIL [Concomitant]
     Indication: DEPRESSION
     Dosage: 20 MG, DAILY
  8. XANAX [Concomitant]
     Indication: PANIC ATTACK
     Dosage: 0.5 MG, AS NEEDED
  9. LORCET [Concomitant]
     Indication: BACK PAIN
     Dosage: ^10 MG^, 3X/DAY
  10. CYMBALTA [Concomitant]
     Dosage: 90 MG, UNK

REACTIONS (1)
  - Pain [Unknown]
